FAERS Safety Report 10416380 (Version 1)
Quarter: 2014Q3

REPORT INFORMATION
  Report Type: Spontaneous
  Country: US (occurrence: None)
  Receive Date: 20140827
  Receipt Date: 20140827
  Transmission Date: 20150326
  Serious: Yes (Other)
  Sender: FDA-Public Use
  Company Number: None

PATIENT
  Age: 16 Year
  Sex: Male
  Weight: 58.97 kg

DRUGS (1)
  1. FLUTICASONE PROPRIONATE NASAL S [Suspect]
     Active Substance: FLUTICASONE PROPIONATE
     Indication: HOUSE DUST ALLERGY
     Dosage: 1 SPRAY ?ONCE DAILY?NASAL SPRAY??A FEW YEARS
     Route: 045

REACTIONS (2)
  - Foot fracture [None]
  - Fibula fracture [None]

NARRATIVE: CASE EVENT DATE: 20140708
